FAERS Safety Report 5031196-9 (Version None)
Quarter: 2006Q2

REPORT INFORMATION
  Report Type: 
  Country: None (occurrence: None)
  Receive Date: 20060621
  Receipt Date: 20060307
  Transmission Date: 20061013
  Serious: No
  Sender: FDA-Public Use
  Company Number: US-GLAXOSMITHKLINE-A0596476A

PATIENT
  Age: 73 Year
  Sex: Male

DRUGS (5)
  1. AVANDARYL [Suspect]
     Dosage: 1TAB PER DAY
     Route: 048
     Dates: start: 20060301
  2. DYNACIRC CR [Suspect]
     Indication: HYPERTENSION
     Dosage: 5MG PER DAY
     Route: 048
     Dates: start: 20060301
  3. ADVAIR DISKUS 100/50 [Concomitant]
  4. SINGULAIR [Concomitant]
  5. ALLEGRA [Concomitant]

REACTIONS (3)
  - CARDIOVASCULAR DISORDER [None]
  - DIARRHOEA [None]
  - HAEMATOCHEZIA [None]
